FAERS Safety Report 7518196-1 (Version None)
Quarter: 2011Q2

REPORT INFORMATION
  Report Type: 
  Country: None (occurrence: None)
  Receive Date: 20110602
  Receipt Date: 20110526
  Transmission Date: 20111010
  Serious: Yes (Death, Other)
  Sender: FDA-Public Use
  Company Number: JP-CEPHALON-2011000233

PATIENT
  Sex: Female

DRUGS (6)
  1. AMINO ACIDS NOS W.CARBOHYD. NOX/ELECTROL. NOS [Concomitant]
     Dates: end: 20101224
  2. GRANISETRON HCL [Concomitant]
     Dates: start: 20101220, end: 20101223
  3. BENDAMUSTINE HCL [Suspect]
     Indication: B-CELL LYMPHOMA
     Route: 042
     Dates: start: 20101220, end: 20101221
  4. SOYBEAN OIL [Concomitant]
  5. CYTARABINE [Concomitant]
     Dates: start: 20101221, end: 20101223
  6. WARFARIN SODIUM [Concomitant]
     Dates: end: 20101220

REACTIONS (12)
  - LYMPHOCYTE COUNT DECREASED [None]
  - PLATELET COUNT DECREASED [None]
  - WHITE BLOOD CELL COUNT DECREASED [None]
  - BLOOD UREA INCREASED [None]
  - HAEMOGLOBIN DECREASED [None]
  - TUMOUR INVASION [None]
  - RED BLOOD CELL COUNT DECREASED [None]
  - BLOOD URIC ACID INCREASED [None]
  - NON-HODGKIN'S LYMPHOMA [None]
  - BLOOD SODIUM INCREASED [None]
  - BLOOD CHLORIDE INCREASED [None]
  - HAEMATOCRIT DECREASED [None]
